FAERS Safety Report 23262457 (Version 2)
Quarter: 2024Q4

REPORT INFORMATION
  Report Type: Report from Study
  Country: US (occurrence: US)
  Receive Date: 20231205
  Receipt Date: 20241016
  Transmission Date: 20250115
  Serious: No
  Sender: ALEXION PHARMACEUTICALS
  Company Number: US-ALXN-202312USA000056US

PATIENT

DRUGS (4)
  1. STRENSIQ [Suspect]
     Active Substance: ASFOTASE ALFA
     Indication: Hypophosphatasia
     Dosage: 40 MILLIGRAM, SIX TIMES/WEEK
  2. STRENSIQ [Suspect]
     Active Substance: ASFOTASE ALFA
     Dosage: 40 MILLIGRAM, SIX TIMES/WEEK
  3. STRENSIQ [Suspect]
     Active Substance: ASFOTASE ALFA
     Dosage: 40 MILLIGRAM, SIX TIMES/WEEK
  4. STRENSIQ [Suspect]
     Active Substance: ASFOTASE ALFA
     Dosage: 40 MILLIGRAM, SIX TIMES/WEEK

REACTIONS (2)
  - Hypoaesthesia [Unknown]
  - Paraesthesia [Recovering/Resolving]
